FAERS Safety Report 6042989-3 (Version None)
Quarter: 2009Q1

REPORT INFORMATION
  Report Type: 
  Country: None (occurrence: None)
  Receive Date: 20090119
  Receipt Date: 20090106
  Transmission Date: 20090719
  Serious: No
  Sender: FDA-Public Use
  Company Number: BR-ROCHE-559863

PATIENT
  Sex: Female
  Weight: 2.9 kg

DRUGS (4)
  1. ROACUTAN [Suspect]
     Route: 064
     Dates: start: 20071201
  2. ROACUTAN [Suspect]
     Route: 064
     Dates: end: 20080101
  3. CONTRACEPTIVE [Concomitant]
     Indication: CONTRACEPTION
  4. 1 UNSPECIFIED DRUG [Concomitant]

REACTIONS (2)
  - NO ADVERSE EVENT [None]
  - NORMAL NEWBORN [None]
